FAERS Safety Report 4894238-7 (Version None)
Quarter: 2006Q1

REPORT INFORMATION
  Report Type: 
  Country: None (occurrence: None)
  Receive Date: 20060127
  Receipt Date: 20051111
  Transmission Date: 20060701
  Serious: No
  Sender: FDA-Public Use
  Company Number: US-GLAXOSMITHKLINE-A0581970A

PATIENT
  Age: 33 Year
  Sex: Female

DRUGS (2)
  1. WELLBUTRIN [Suspect]
     Indication: DEPRESSION
     Dosage: 150MG TWICE PER DAY
     Route: 048
  2. NEXIUM [Concomitant]

REACTIONS (5)
  - ANGER [None]
  - MUSCLE SPASMS [None]
  - REFLEXES ABNORMAL [None]
  - TREMOR [None]
  - WEIGHT DECREASED [None]
